FAERS Safety Report 20990061 (Version 2)
Quarter: 2022Q3

REPORT INFORMATION
  Report Type: Spontaneous
  Country: US (occurrence: US)
  Receive Date: 20220621
  Receipt Date: 20220816
  Transmission Date: 20221027
  Serious: No
  Sender: FDA-Public Use
  Company Number: US-BoehringerIngelheim-2022-BI-177545

PATIENT
  Age: 63 Year
  Sex: Female

DRUGS (1)
  1. SPIRIVA HANDIHALER [Suspect]
     Active Substance: TIOTROPIUM BROMIDE MONOHYDRATE
     Indication: Asthma

REACTIONS (6)
  - Dyspnoea [Not Recovered/Not Resolved]
  - Off label use [Unknown]
  - Wrong patient received product [Unknown]
  - Therapy change [Unknown]
  - Product after taste [Unknown]
  - Device issue [Unknown]

NARRATIVE: CASE EVENT DATE: 20220621
